FAERS Safety Report 15258272 (Version 1)
Quarter: 2018Q3

REPORT INFORMATION
  Report Type: Report from Study
  Country: BR (occurrence: BR)
  Receive Date: 20180809
  Receipt Date: 20180809
  Transmission Date: 20181010
  Serious: Yes (Hospitalization, Other)
  Sender: FDA-Public Use
  Company Number: BR-ROCHE-2157930

PATIENT
  Sex: Male
  Weight: 96 kg

DRUGS (4)
  1. DULOXETINE. [Concomitant]
     Active Substance: DULOXETINE
     Indication: DEPRESSION
     Route: 048
  2. XOLAIR [Suspect]
     Active Substance: OMALIZUMAB
     Indication: URTICARIA
     Dosage: 300 MG
     Route: 058
     Dates: start: 20160623
  3. XOLAIR [Suspect]
     Active Substance: OMALIZUMAB
     Dosage: 1 DF, UNK
     Route: 058
  4. NORIPURUM [Concomitant]
     Active Substance: IRON POLYMALTOSE
     Indication: PRODUCT USED FOR UNKNOWN INDICATION
     Route: 048
     Dates: start: 20180207

REACTIONS (10)
  - Eye pruritus [Recovering/Resolving]
  - Decreased activity [Unknown]
  - Meniscus injury [Recovered/Resolved with Sequelae]
  - Urticaria [Recovering/Resolving]
  - Intervertebral disc protrusion [Recovered/Resolved with Sequelae]
  - Pruritus [Recovering/Resolving]
  - Weight decreased [Recovering/Resolving]
  - Ligament rupture [Recovering/Resolving]
  - Drug ineffective [Unknown]
  - Weight abnormal [Unknown]
